FAERS Safety Report 15585123 (Version 2)
Quarter: 2018Q4

REPORT INFORMATION
  Report Type: Spontaneous
  Country: PL (occurrence: PL)
  Receive Date: 20181102
  Receipt Date: 20181116
  Transmission Date: 20190205
  Serious: Yes (Hospitalization, Other)
  Sender: FDA-Public Use
  Company Number: PL-ASTRAZENECA-2018SF43098

PATIENT
  Age: 51 Year
  Sex: Male

DRUGS (1)
  1. BRILIQUE [Suspect]
     Active Substance: TICAGRELOR
     Indication: MYOCARDIAL INFARCTION
     Dosage: 180
     Route: 048

REACTIONS (5)
  - Aortic aneurysm [Unknown]
  - Product use in unapproved indication [Unknown]
  - Off label use [Unknown]
  - Aortic dissection [Unknown]
  - Aortic valve incompetence [Unknown]
